FAERS Safety Report 11835268 (Version 2)
Quarter: 2016Q1

REPORT INFORMATION
  Report Type: Report from Study
  Country: US (occurrence: US)
  Receive Date: 20151215
  Receipt Date: 20160118
  Transmission Date: 20160525
  Serious: Yes (Other)
  Sender: FDA-Public Use
  Company Number: US-AMGEN-USANI2015129006

PATIENT
  Age: 54 Year
  Sex: Female
  Weight: 69.6 kg

DRUGS (20)
  1. CELEXA [Concomitant]
     Active Substance: CITALOPRAM HYDROBROMIDE
     Dosage: 40 MG, QD
     Dates: start: 2011
  2. XANAX [Concomitant]
     Active Substance: ALPRAZOLAM
     Dosage: 8.5 MG, Q8H
     Route: 048
     Dates: start: 20140614
  3. COMPAZINE [Concomitant]
     Active Substance: PROCHLORPERAZINE MALEATE
     Dosage: 10 MG, AS NECESSARY
     Route: 048
     Dates: start: 20140702
  4. GEMCITABINE [Concomitant]
     Active Substance: GEMCITABINE\GEMCITABINE HYDROCHLORIDE
  5. NEULASTA [Concomitant]
     Active Substance: PEGFILGRASTIM
  6. METHADONE [Concomitant]
     Active Substance: METHADONE HYDROCHLORIDE
     Dosage: 5 MG, Q8H
     Route: 048
     Dates: start: 20150324
  7. LASIX [Concomitant]
     Active Substance: FUROSEMIDE
     Dosage: 20 MG, QD
     Route: 048
     Dates: start: 20151103
  8. CELEBREX [Concomitant]
     Active Substance: CELECOXIB
     Indication: PAIN
     Dosage: 100 MG, BID
     Route: 048
     Dates: start: 20150824
  9. ARMOUR THYROID [Concomitant]
     Active Substance: THYROID, PORCINE
     Dosage: 90 MG, UNK
     Route: 048
     Dates: start: 1997
  10. POTASSIUM CHLORIDE. [Concomitant]
     Active Substance: POTASSIUM CHLORIDE
     Dosage: 10 MG, QD
     Route: 048
     Dates: start: 20151103
  11. REGLAN [Concomitant]
     Active Substance: METOCLOPRAMIDE HYDROCHLORIDE
     Dosage: 10 MG, BID
     Route: 048
     Dates: start: 20150519
  12. LACTULOSE. [Concomitant]
     Active Substance: LACTULOSE
     Indication: CONSTIPATION
  13. RITALIN [Concomitant]
     Active Substance: METHYLPHENIDATE HYDROCHLORIDE
     Dosage: 5 MG, BID
     Route: 048
     Dates: start: 20150828
  14. MIRALAX [Concomitant]
     Active Substance: POLYETHYLENE GLYCOL 3350
     Dosage: 15000 UNK, AS NECESSARY
     Route: 048
     Dates: start: 20140904
  15. ZOFRAN [Concomitant]
     Active Substance: ONDANSETRON HYDROCHLORIDE
     Dosage: 8 MG, Q8H
     Route: 048
     Dates: start: 20140702
  16. DENOSUMAB [Suspect]
     Active Substance: DENOSUMAB
     Indication: PRODUCT USED FOR UNKNOWN INDICATION
     Dosage: 120 MG, Q4WK
     Route: 058
     Dates: start: 20140716, end: 20150611
  17. XGEVA [Suspect]
     Active Substance: DENOSUMAB
     Indication: METASTASES TO BONE
     Dosage: UNK
     Route: 065
  18. ABRAXANE [Concomitant]
     Active Substance: PACLITAXEL
  19. DILAUDID [Concomitant]
     Active Substance: HYDROMORPHONE HYDROCHLORIDE
     Indication: PAIN
     Dosage: 8 MG, AS NECESSARY
     Route: 048
     Dates: start: 20140604
  20. SENOKOT [Concomitant]
     Active Substance: SENNOSIDES
     Indication: CONSTIPATION
     Dosage: 1 DF, BID
     Route: 048
     Dates: start: 20141027

REACTIONS (1)
  - Osteonecrosis of jaw [Not Recovered/Not Resolved]

NARRATIVE: CASE EVENT DATE: 20151110
